FAERS Safety Report 5321883-7 (Version None)
Quarter: 2007Q2

REPORT INFORMATION
  Report Type: 
  Country: None (occurrence: None)
  Receive Date: 20070510
  Receipt Date: 20070503
  Transmission Date: 20071010
  Serious: Yes (Other)
  Sender: FDA-Public Use
  Company Number: BR-ABBOTT-07P-020-0364950-00

PATIENT
  Age: 53 Year
  Sex: Female

DRUGS (4)
  1. KALETRA [Suspect]
     Indication: HIV INFECTION
     Route: 048
     Dates: start: 20001101
  2. TENOFOVIR [Concomitant]
     Indication: HIV INFECTION
     Route: 048
  3. LAMIVUDINE [Concomitant]
     Indication: HIV INFECTION
     Route: 048
  4. EFAVIRENZ [Concomitant]
     Indication: HIV INFECTION
     Route: 048
     Dates: end: 20070401

REACTIONS (4)
  - ANAL HAEMORRHAGE [None]
  - DYSTHYMIC DISORDER [None]
  - EPISTAXIS [None]
  - UTERINE HAEMORRHAGE [None]
